FAERS Safety Report 6887060-3 (Version None)
Quarter: 2010Q3

REPORT INFORMATION
  Report Type: 
  Country: None (occurrence: None)
  Receive Date: 20100708
  Receipt Date: 20100224
  Transmission Date: 20110219
  Serious: Yes (Other)
  Sender: FDA-Public Use
  Company Number: 2010024583

PATIENT
  Age: 53 Year
  Sex: Female
  Weight: 66.7 kg

DRUGS (2)
  1. CHANTIX [Suspect]
     Indication: SMOKING CESSATION THERAPY
     Dosage: 0.5 MG, DAILY, ORAL
     Route: 048
     Dates: start: 20100216, end: 20100223
  2. TRAMADOL HCL [Concomitant]

REACTIONS (5)
  - CRYING [None]
  - DEPRESSION [None]
  - INSOMNIA [None]
  - NAUSEA [None]
  - VOMITING [None]
